FAERS Safety Report 6164612-X (Version None)
Quarter: 2009Q2

REPORT INFORMATION
  Report Type: 
  Country: None (occurrence: None)
  Receive Date: 20090423
  Receipt Date: 20090416
  Transmission Date: 20091009
  Serious: Yes (Hospitalization)
  Sender: FDA-Public Use
  Company Number: US-ELI_LILLY_AND_COMPANY-US200904003796

PATIENT
  Sex: Female

DRUGS (4)
  1. BYETTA [Suspect]
     Dosage: 10 UG, 2/D
  2. BYETTA [Suspect]
     Dosage: 10 UG, 2/D
     Route: 058
  3. COUMADIN [Concomitant]
  4. PLAVIX [Concomitant]

REACTIONS (3)
  - ASTHENIA [None]
  - KNEE ARTHROPLASTY [None]
  - PNEUMONIA [None]
